FAERS Safety Report 9901249 (Version 3)
Quarter: 2014Q2

REPORT INFORMATION
  Report Type: Spontaneous
  Country: GB (occurrence: GB)
  Receive Date: 20140217
  Receipt Date: 20140409
  Transmission Date: 20141212
  Serious: Yes (Hospitalization, Other)
  Sender: FDA-Public Use
  Company Number: GB-MERCK-1402GBR007776

PATIENT
  Age: 52 Year
  Sex: Female

DRUGS (6)
  1. DEXAMETHASONE [Suspect]
     Indication: GAMMA RADIATION THERAPY
     Dosage: 4 MG, Q6H
     Route: 048
     Dates: start: 20130605, end: 20130607
  2. ANESTHETIC (UNSPECIFIED) [Concomitant]
  3. ACETAMINOPHEN [Concomitant]
  4. PROPRANOLOL HYDROCHLORIDE [Concomitant]
  5. RANITIDINE [Concomitant]
     Dosage: UNK
     Dates: start: 20130605
  6. TEMAZEPAM [Concomitant]

REACTIONS (8)
  - Duodenal ulcer haemorrhage [Recovered/Resolved]
  - Haematochezia [Recovered/Resolved]
  - Loss of consciousness [Recovered/Resolved]
  - Abdominal pain upper [Recovered/Resolved]
  - Multi-organ failure [Recovered/Resolved]
  - Procedural intestinal perforation [Recovered/Resolved]
  - Varices oesophageal [Unknown]
  - Malaise [Recovered/Resolved]
